FAERS Safety Report 4297466-7 (Version None)
Quarter: 2004Q1

REPORT INFORMATION
  Report Type: 
  Country: None (occurrence: None)
  Receive Date: 20040218
  Receipt Date: 20030610
  Transmission Date: 20041129
  Serious: Yes (Hospitalization)
  Sender: FDA-Public Use
  Company Number: PHHO2003ES07390

PATIENT
  Age: 66 Year
  Sex: Female

DRUGS (4)
  1. SANDIMMUNE [Suspect]
     Indication: TRANSPLANT
     Dosage: 600MG CUMULATIVE DOSE
     Dates: start: 20020322, end: 20020326
  2. SANDIMMUNE [Suspect]
     Dosage: 20,050MG CUMULATIVE DOSE
     Dates: start: 20020327, end: 20020702
  3. SANDIMMUNE [Suspect]
     Dates: start: 20020703
  4. AREDIA [Suspect]
     Indication: OSTEODYSTROPHY
     Dosage: TREATMENT PHASE
     Dates: start: 20020327

REACTIONS (1)
  - DELIRIUM [None]
